FAERS Safety Report 4457348-4 (Version None)
Quarter: 2004Q3

REPORT INFORMATION
  Report Type: 
  Country: None (occurrence: None)
  Receive Date: 20040921
  Receipt Date: 20040902
  Transmission Date: 20050211
  Serious: Yes (Hospitalization, Disabling)
  Sender: FDA-Public Use
  Company Number: B0344973A

PATIENT
  Age: 63 Year
  Sex: Male

DRUGS (7)
  1. ZANTAC 150 [Suspect]
     Indication: REFLUX OESOPHAGITIS
     Dosage: ORAL
     Route: 048
  2. TACROLIMUS TABLET (TACROLIMUS) [Suspect]
     Indication: RENAL TRANSPLANT
     Dosage: ORAL
     Route: 048
     Dates: start: 20020130
  3. CYCLOSPORIN TABLET (CYCLOSPORINE) [Suspect]
     Indication: RENAL TRANSPLANT
     Dosage: ORAL
     Route: 048
     Dates: start: 20011219, end: 20020130
  4. MYCOPHENOLATE MOFETIL TABLET (MYCOPHENOLATE MOFETIL) [Suspect]
     Indication: RENAL TRANSPLANT
     Dosage: ORAL
     Route: 048
     Dates: start: 20011219
  5. PREDNISOLONE [Concomitant]
  6. PANTOPRAZOLE [Concomitant]
  7. METOPROLOL SUCCINATE [Concomitant]

REACTIONS (5)
  - ANAEMIA [None]
  - DRUG LEVEL BELOW THERAPEUTIC [None]
  - KIDNEY TRANSPLANT REJECTION [None]
  - NEPHROPATHY TOXIC [None]
  - RENAL FAILURE [None]
